FAERS Safety Report 23722750 (Version 1)
Quarter: 2024Q2

REPORT INFORMATION
  Report Type: Spontaneous
  Country: US (occurrence: None)
  Receive Date: 20240408
  Receipt Date: 20240408
  Transmission Date: 20240715
  Serious: No
  Sender: FDA-Public Use
  Company Number: None

PATIENT
  Sex: Male

DRUGS (9)
  1. LENALIDOMIDE [Suspect]
     Active Substance: LENALIDOMIDE
     Indication: Plasma cell myeloma
     Dosage: OTHER FREQUENCY : DAILY 21 DAYS;?
     Route: 048
     Dates: start: 20230630
  2. PROTONIX [Concomitant]
     Active Substance: PANTOPRAZOLE SODIUM
  3. ACYCLOVIR [Concomitant]
     Active Substance: ACYCLOVIR
  4. REVLIMID [Concomitant]
     Active Substance: LENALIDOMIDE
  5. MS CONTIN [Concomitant]
     Active Substance: MORPHINE SULFATE
  6. CALCIUM [Concomitant]
     Active Substance: CALCIUM
  7. POMALYST [Concomitant]
     Active Substance: POMALIDOMIDE
  8. CANNAOIDIOL [Concomitant]
  9. ELIQUIS [Concomitant]
     Active Substance: APIXABAN

REACTIONS (2)
  - Localised oedema [None]
  - Pain [None]
